FAERS Safety Report 4574454-4 (Version None)
Quarter: 2005Q1

REPORT INFORMATION
  Report Type: 
  Country: None (occurrence: None)
  Receive Date: 20050204
  Receipt Date: 20050125
  Transmission Date: 20050727
  Serious: Yes (Hospitalization)
  Sender: FDA-Public Use
  Company Number: 2005018891

PATIENT
  Age: 46 Year
  Sex: Female
  Weight: 99 kg

DRUGS (1)
  1. GENOTROPIN [Suspect]
     Indication: HYPOPITUITARISM
     Dosage: 1.4 MG (1.4 MG, DAILY)
     Dates: start: 20040102

REACTIONS (1)
  - BREAST COSMETIC SURGERY [None]
